FAERS Safety Report 10274269 (Version 6)
Quarter: 2015Q1

REPORT INFORMATION
  Report Type: Spontaneous
  Country: US (occurrence: US)
  Receive Date: 20140702
  Receipt Date: 20150306
  Transmission Date: 20150720
  Serious: No
  Sender: FDA-Public Use
  Company Number: US-PFIZER INC-2014178736

PATIENT
  Age: 53 Year
  Sex: Female

DRUGS (15)
  1. CELEBREX [Suspect]
     Active Substance: CELECOXIB
     Indication: OSTEOARTHRITIS
  2. NEURONTIN [Suspect]
     Active Substance: GABAPENTIN
     Indication: NEURALGIA
     Dosage: 300-3600 MG, (2-3 PRN )AS NEEDED
     Route: 048
     Dates: start: 2002
  3. DIAZEPAM. [Concomitant]
     Active Substance: DIAZEPAM
     Indication: MUSCLE SPASMS
     Dosage: 30 MG UNK
     Dates: start: 20030724, end: 2008
  4. BABY ASPIRIN [Concomitant]
     Active Substance: ASPIRIN
     Dosage: 325 MG, DAILY
  5. OXYCODONE [Suspect]
     Active Substance: OXYCODONE
     Indication: SPINAL CORD INJURY
  6. NEURONTIN [Suspect]
     Active Substance: GABAPENTIN
     Indication: BURNING SENSATION
     Dosage: 300-900 MG ( QID PRN)
  7. OXYCODONE [Suspect]
     Active Substance: OXYCODONE
     Indication: CLUSTER HEADACHE
  8. NEURONTIN [Suspect]
     Active Substance: GABAPENTIN
     Indication: FIBROMYALGIA
  9. CELEBREX [Suspect]
     Active Substance: CELECOXIB
     Indication: BONE PAIN
     Dosage: 200 MG, 2X/DAY (WITH FOOD)
     Route: 048
     Dates: start: 1990
  10. OXYCODONE [Suspect]
     Active Substance: OXYCODONE
     Indication: PAIN
     Dosage: 30 MG, UNK
     Route: 048
     Dates: start: 2007
  11. OXYCODONE [Suspect]
     Active Substance: OXYCODONE
     Indication: OSTEOARTHRITIS
  12. DIAZEPAM. [Concomitant]
     Active Substance: DIAZEPAM
     Dosage: 10 MG, 4X/DAY
     Route: 008
  13. CELEBREX [Suspect]
     Active Substance: CELECOXIB
     Indication: ARTHRALGIA
  14. DIAZEPAM. [Concomitant]
     Active Substance: DIAZEPAM
     Indication: ANXIETY
     Dosage: 20 MG 3X/DAY
     Dates: start: 2008
  15. BAYER CHILDREN ORANGE CHEWABLE ASPIRIN [Concomitant]
     Dosage: UNK
     Dates: start: 2014

REACTIONS (15)
  - Urticaria [Unknown]
  - Asthenia [Unknown]
  - Lip swelling [Unknown]
  - Malaise [Unknown]
  - Gastrointestinal pain [Unknown]
  - Drug intolerance [Unknown]
  - Fatigue [Unknown]
  - Dehydration [Unknown]
  - Drug ineffective [Unknown]
  - Hallucination [Unknown]
  - Euphoric mood [Unknown]
  - Nightmare [Unknown]
  - Dyskinesia [Unknown]
  - Nausea [Unknown]
  - Vomiting [Unknown]
